FAERS Safety Report 10087105 (Version 2)
Quarter: 2014Q2

REPORT INFORMATION
  Report Type: Report from Study
  Country: FR (occurrence: FR)
  Receive Date: 20140418
  Receipt Date: 20140427
  Transmission Date: 20141212
  Serious: Yes (Other)
  Sender: FDA-Public Use
  Company Number: FR-BRISTOL-MYERS SQUIBB COMPANY-20620381

PATIENT
  Age: 51 Year
  Sex: Female

DRUGS (1)
  1. SPRYCEL [Suspect]
     Indication: CHRONIC MYELOID LEUKAEMIA
     Dosage: INT:05MAR2014
     Route: 048
     Dates: start: 20111207, end: 20140305

REACTIONS (2)
  - Lymphadenopathy [Recovered/Resolved]
  - Pleural effusion [Recovering/Resolving]
